FAERS Safety Report 12410350 (Version 2)
Quarter: 2016Q2

REPORT INFORMATION
  Report Type: Spontaneous
  Country: JP (occurrence: JP)
  Receive Date: 20160527
  Receipt Date: 20160617
  Transmission Date: 20160815
  Serious: Yes (Hospitalization, Other)
  Sender: FDA-Public Use
  Company Number: JP-TAKEDA-2016TJP010047

PATIENT
  Age: 83 Year
  Sex: Female
  Weight: 30.4 kg

DRUGS (4)
  1. TAKEPRON OD TABLETS 15 [Suspect]
     Active Substance: LANSOPRAZOLE
     Indication: GASTRITIS PROPHYLAXIS
     Dosage: 15 MG, QD
     Route: 048
     Dates: start: 20160325, end: 20160511
  2. BAKTAR [Suspect]
     Active Substance: SULFAMETHOXAZOLE\TRIMETHOPRIM
     Indication: PROPHYLAXIS
     Dosage: 1 DF, 3/WEEK
     Route: 048
     Dates: start: 20160331, end: 20160511
  3. PREDONINE [Concomitant]
     Active Substance: PREDNISOLONE\PREDNISOLONE ACETATE\PREDNISOLONE SODIUM SUCCINATE
     Indication: STILL^S DISEASE ADULT ONSET
     Dosage: 30 MG, UNK
     Route: 048
     Dates: start: 20160325
  4. PREDONINE [Concomitant]
     Active Substance: PREDNISOLONE\PREDNISOLONE ACETATE\PREDNISOLONE SODIUM SUCCINATE
     Dosage: 25 MG, QD
     Route: 048

REACTIONS (3)
  - Pneumonia [Unknown]
  - Agranulocytosis [Recovered/Resolved]
  - Sepsis [Unknown]

NARRATIVE: CASE EVENT DATE: 201605
